FAERS Safety Report 5068234-3 (Version None)
Quarter: 2006Q3

REPORT INFORMATION
  Report Type: 
  Country: None (occurrence: None)
  Receive Date: 20060802
  Receipt Date: 20050616
  Transmission Date: 20061208
  Serious: Yes (Other)
  Sender: FDA-Public Use
  Company Number: US-BRISTOL-MYERS SQUIBB COMPANY-13005814

PATIENT
  Age: 45 Year
  Sex: Female

DRUGS (1)
  1. COUMADIN [Suspect]
     Indication: DEEP VEIN THROMBOSIS
     Dosage: 10/25/04:10MG QD;11/04:INCREASE TO10MG QOD ALTERNATE WITH 12.5MG;11/8/04:SAME DOSE;CURRENTLY 20MG QD
     Route: 048
     Dates: start: 19980101

REACTIONS (1)
  - INTERNATIONAL NORMALISED RATIO ABNORMAL [None]
